FAERS Safety Report 12186172 (Version 2)
Quarter: 2018Q1

REPORT INFORMATION
  Report Type: Spontaneous
  Country: US (occurrence: US)
  Receive Date: 20160317
  Receipt Date: 20180327
  Transmission Date: 20180508
  Serious: No
  Sender: FDA-Public Use
  Company Number: US-AUROBINDO-AUR-APU-2015-02248

PATIENT
  Sex: Male

DRUGS (1)
  1. GABAPENTIN 300MG [Suspect]
     Active Substance: GABAPENTIN
     Indication: PAIN
     Dosage: 4 DF, DAILY
     Route: 065
     Dates: end: 20150311

REACTIONS (2)
  - Pyrexia [Unknown]
  - Blister [Unknown]
